FAERS Safety Report 6582609-2 (Version None)
Quarter: 2010Q1

REPORT INFORMATION
  Report Type: 
  Country: None (occurrence: None)
  Receive Date: 20100216
  Receipt Date: 20100208
  Transmission Date: 20100710
  Serious: Yes (Life-Threatening, Other)
  Sender: FDA-Public Use
  Company Number: CA-AMGEN-QUU386043

PATIENT
  Sex: Male
  Weight: 135 kg

DRUGS (12)
  1. ENBREL [Suspect]
     Indication: DRUG USE FOR UNKNOWN INDICATION
     Route: 058
     Dates: start: 20040401, end: 20100112
  2. FLOVENT [Concomitant]
  3. ALBUTEROL [Concomitant]
  4. SENNA [Concomitant]
  5. LACTULOSE [Concomitant]
  6. ATROVENT [Concomitant]
  7. DILTIAZEM HCL [Concomitant]
  8. RISEDRONATE SODIUM [Concomitant]
  9. LEVOTHYROXINE SODIUM [Concomitant]
  10. ALLOPURINOL [Concomitant]
  11. VITAMIN B-12 [Concomitant]
  12. ASPIRIN [Concomitant]

REACTIONS (4)
  - B-CELL LYMPHOMA [None]
  - PRODUCTIVE COUGH [None]
  - RESPIRATORY DISTRESS [None]
  - STAPHYLOCOCCAL INFECTION [None]
